FAERS Safety Report 18979640 (Version 3)
Quarter: 2021Q2

REPORT INFORMATION
  Report Type: Report from Study
  Country: JP (occurrence: JP)
  Receive Date: 20210308
  Receipt Date: 20210524
  Transmission Date: 20210717
  Serious: No
  Sender: FDA-Public Use
  Company Number: NVSJ2021JP003132

PATIENT
  Age: 54 Year
  Sex: Male

DRUGS (3)
  1. RIAMET COMBINATION TABLET [Suspect]
     Active Substance: ARTEMETHER\LUMEFANTRINE
     Dosage: 4 DF
     Route: 048
     Dates: start: 20210126
  2. RIAMET COMBINATION TABLET [Suspect]
     Active Substance: ARTEMETHER\LUMEFANTRINE
     Indication: PLASMODIUM FALCIPARUM INFECTION
     Dosage: 4 DF
     Route: 048
     Dates: start: 20210123
  3. RIAMET COMBINATION TABLET [Suspect]
     Active Substance: ARTEMETHER\LUMEFANTRINE
     Dosage: 4 DF, BID
     Route: 048
     Dates: start: 20210124, end: 20210125

REACTIONS (1)
  - Liver disorder [Unknown]

NARRATIVE: CASE EVENT DATE: 20210128
